FAERS Safety Report 14226803 (Version 2)
Quarter: 2017Q4

REPORT INFORMATION
  Report Type: Spontaneous
  Country: JP (occurrence: JP)
  Receive Date: 20171127
  Receipt Date: 20171208
  Transmission Date: 20180321
  Serious: Yes (Life-Threatening, Hospitalization)
  Sender: FDA-Public Use
  Company Number: JP-NOVOPROD-573450

PATIENT
  Age: 31 Year
  Sex: Male
  Weight: 100 kg

DRUGS (2)
  1. TRESIBA CHU [Suspect]
     Active Substance: INSULIN DEGLUDEC
     Dosage: 450 U
     Route: 058
     Dates: end: 201607
  2. TRESIBA CHU [Suspect]
     Active Substance: INSULIN DEGLUDEC
     Indication: TYPE 2 DIABETES MELLITUS
     Dosage: UNK
     Route: 058
     Dates: start: 201604

REACTIONS (2)
  - Suicide attempt [Recovered/Resolved]
  - Intentional overdose [Unknown]

NARRATIVE: CASE EVENT DATE: 20160706
